FAERS Safety Report 5330618-3 (Version None)
Quarter: 2007Q2

REPORT INFORMATION
  Report Type: 
  Country: None (occurrence: None)
  Receive Date: 20070516
  Receipt Date: 20070507
  Transmission Date: 20071010
  Serious: Yes (Other)
  Sender: FDA-Public Use
  Company Number: 2007AL001898

PATIENT
  Age: 39 Year
  Sex: Female

DRUGS (2)
  1. ACYCLOVIR [Suspect]
     Indication: GENITAL HERPES
     Dosage: 200 MG;QD;PO
     Route: 048
     Dates: start: 20060724, end: 20060728
  2. CO-DYDRAMOL [Concomitant]

REACTIONS (3)
  - HALLUCINATION, AUDITORY [None]
  - NIGHTMARE [None]
  - SOMNOLENCE [None]
